FAERS Safety Report 23272529 (Version 1)
Quarter: 2023Q4

REPORT INFORMATION
  Report Type: Spontaneous
  Country: TR (occurrence: TR)
  Receive Date: 20231207
  Receipt Date: 20231207
  Transmission Date: 20240109
  Serious: Yes (Other)
  Sender: FDA-Public Use
  Company Number: TR-002147023-NVSC2023TR255664

PATIENT
  Age: 80 Year
  Sex: Male

DRUGS (2)
  1. EXELON [Suspect]
     Active Substance: RIVASTIGMINE TARTRATE
     Dosage: 10 MG
     Route: 065
  2. EXELON [Suspect]
     Active Substance: RIVASTIGMINE TARTRATE
     Indication: Dementia
     Dosage: 15 MG (FOR 15 YEARS)
     Route: 065

REACTIONS (4)
  - Bedridden [Unknown]
  - Dystonia [Unknown]
  - Hallucination [Unknown]
  - Screaming [Unknown]
